FAERS Safety Report 4945599-1 (Version None)
Quarter: 2006Q1

REPORT INFORMATION
  Report Type: 
  Country: None (occurrence: None)
  Receive Date: 20060316
  Receipt Date: 20050901
  Transmission Date: 20060701
  Serious: Yes (Hospitalization)
  Sender: FDA-Public Use
  Company Number: US-MERCK-0509USA00224

PATIENT
  Age: 57 Year
  Sex: Female

DRUGS (3)
  1. VIOXX [Suspect]
     Indication: BURSITIS
     Route: 048
     Dates: start: 20010701, end: 20040901
  2. VIOXX [Suspect]
     Route: 048
     Dates: start: 20010401, end: 20010425
  3. CELEBREX [Suspect]
     Route: 065
     Dates: start: 20010425

REACTIONS (4)
  - ANAPHYLACTIC REACTION [None]
  - DRUG INEFFECTIVE [None]
  - MYOCARDIAL INFARCTION [None]
  - OSTEOARTHRITIS [None]
